FAERS Safety Report 11465291 (Version 2)
Quarter: 2015Q3

REPORT INFORMATION
  Report Type: Spontaneous
  Country: US (occurrence: US)
  Receive Date: 20150907
  Receipt Date: 20150930
  Transmission Date: 20151125
  Serious: No
  Sender: FDA-Public Use
  Company Number: US-009507513-1509USA002987

PATIENT
  Age: 16 Year
  Sex: Female
  Weight: 95.24 kg

DRUGS (1)
  1. NEXPLANON [Suspect]
     Active Substance: ETONOGESTREL
     Dosage: IN THE ARM
     Route: 059
     Dates: end: 20150902

REACTIONS (5)
  - Complication of device removal [Unknown]
  - Device deployment issue [Unknown]
  - Device difficult to use [Unknown]
  - Device difficult to use [Unknown]
  - Weight increased [Unknown]

NARRATIVE: CASE EVENT DATE: 201505
